FAERS Safety Report 15793518 (Version 2)
Quarter: 2020Q1

REPORT INFORMATION
  Report Type: Spontaneous
  Country: US (occurrence: US)
  Receive Date: 20190107
  Receipt Date: 20200106
  Transmission Date: 20200409
  Serious: No
  Sender: FDA-Public Use
  Company Number: US-PFIZER INC-2019004946

PATIENT
  Age: 43 Year
  Sex: Male

DRUGS (3)
  1. LYRICA [Suspect]
     Active Substance: PREGABALIN
     Indication: SMALL FIBRE NEUROPATHY
     Dosage: 100 MG, 2X/DAY (TAKE 1 CAPSULE (100 MG TOTAL) BY MOUTH 2 (TWO) TIMES A DAY)
     Route: 048
     Dates: start: 20191230
  2. LYRICA [Suspect]
     Active Substance: PREGABALIN
     Indication: BURNING SENSATION
  3. LYRICA [Suspect]
     Active Substance: PREGABALIN
     Indication: NEURALGIA
     Dosage: 100 MG, 1X/DAY

REACTIONS (1)
  - Therapeutic product effect incomplete [Unknown]
